FAERS Safety Report 13500228 (Version 2)
Quarter: 2017Q2

REPORT INFORMATION
  Report Type: Spontaneous
  Country: US (occurrence: US)
  Receive Date: 20170501
  Receipt Date: 20170612
  Transmission Date: 20170830
  Serious: Yes (Death)
  Sender: FDA-Public Use
  Company Number: US-KERYX BIOPHARMACEUTICALS, INC.-2017US002776

PATIENT
  Sex: Male

DRUGS (29)
  1. AURYXIA [Suspect]
     Active Substance: TETRAFERRIC TRICITRATE DECAHYDRATE
     Indication: HYPERPHOSPHATAEMIA
     Dosage: 6 G (6 TABLETS), DAILY
     Route: 048
     Dates: start: 20170111
  2. EPOETIN [Concomitant]
     Active Substance: ERYTHROPOIETIN
     Dosage: 500 UNIT, EVERY SCHEDULED DIALYSIS
     Route: 065
  3. RENVELA [Concomitant]
     Active Substance: SEVELAMER CARBONATE
     Dosage: 3200 MG, CC WITH MEAL
     Route: 065
  4. MULTIVITAMIN                       /00097801/ [Concomitant]
     Active Substance: VITAMINS
     Dosage: 1 TAB, QD
     Route: 065
  5. LEVEMIR [Concomitant]
     Active Substance: INSULIN DETEMIR
     Dosage: 10 UNIT, BID
     Route: 065
  6. TYLENOL [Concomitant]
     Active Substance: ACETAMINOPHEN
     Dosage: 325 MG, PRN
     Route: 048
  7. EPOETIN [Concomitant]
     Active Substance: ERYTHROPOIETIN
     Dosage: 300 UNIT, EVERY SCHEDULED DIALYSIS
  8. THROMBOSTAT [Concomitant]
     Active Substance: THROMBIN
     Dosage: 1:1000, PRN
     Route: 065
  9. HEPATITIS B VACCINE [Concomitant]
     Active Substance: HEPATITIS B VIRUS VACCINE
     Dosage: 40 MICRO-G, SERIES, PRN
     Route: 065
  10. INFLUENZA VACCINE [Concomitant]
     Active Substance: INFLUENZA VIRUS VACCINE
     Dosage: 0.5 ML, PRN
     Route: 065
  11. PNEUMOVAX 23 [Concomitant]
     Active Substance: PNEUMOCOCCAL VACCINE, POLYVALENT 23
     Dosage: 0.5 ML, PRN
     Route: 065
  12. VITAMIN B12 [Concomitant]
     Active Substance: CYANOCOBALAMIN
     Dosage: 2500 MICRO-G, QD
     Route: 065
  13. SYNTHROID [Concomitant]
     Active Substance: LEVOTHYROXINE SODIUM
     Dosage: 150 MICRO-G, QHS
     Route: 065
  14. PROTEIN [Concomitant]
     Active Substance: PROTEIN
     Dosage: 30 G, QD
     Route: 065
  15. CILOSTAZOL. [Concomitant]
     Active Substance: CILOSTAZOL
     Dosage: 100 MG, BID
     Route: 065
  16. ASA [Concomitant]
     Active Substance: ASPIRIN
     Dosage: 81 MG, QD
     Route: 065
  17. PPD DISPOSABLE [Concomitant]
     Active Substance: TUBERCULIN PURIFIED PROTEIN DERIVATIVE
     Dosage: 0.1 ML, PRN
     Route: 065
  18. HEPATITIS B VACCINE [Concomitant]
     Active Substance: HEPATITIS B VIRUS VACCINE
     Dosage: 40 MICRO-G, BOOSTER, PRN
     Route: 065
  19. PACERONE [Concomitant]
     Active Substance: AMIODARONE HYDROCHLORIDE
     Dosage: 200 MG, QD
     Route: 065
  20. HECTOROL [Concomitant]
     Active Substance: DOXERCALCIFEROL
     Dosage: 3.5 MICRO-G, EVERY SCHEDULED DIALYSIS
     Route: 065
  21. ZYRTEC                             /00884302/ [Concomitant]
     Dosage: 10 MG, QD
     Route: 065
  22. METOPROLOL SUCCINATE. [Concomitant]
     Active Substance: METOPROLOL SUCCINATE
     Dosage: 25 MG, QHS
     Route: 065
  23. NOVOLOG [Concomitant]
     Active Substance: INSULIN ASPART
     Dosage: 10 UNIT, TID
     Route: 065
  24. OMEPRAZOLE. [Concomitant]
     Active Substance: OMEPRAZOLE
     Dosage: 20 MG, QD
     Route: 065
  25. MANNITOL. [Concomitant]
     Active Substance: MANNITOL
     Dosage: 12.5 G, PRN
     Route: 065
  26. DEXTROSE. [Concomitant]
     Active Substance: DEXTROSE
     Dosage: 1 AMP, PRN
     Route: 065
  27. COUMADIN [Concomitant]
     Active Substance: WARFARIN SODIUM
     Dosage: 2 MG, QD
     Route: 065
  28. VITAMIN D3 [Concomitant]
     Active Substance: CHOLECALCIFEROL
     Dosage: 1000 U, QD
     Route: 065
  29. SIMVASTATIN. [Concomitant]
     Active Substance: SIMVASTATIN
     Dosage: 20 MG, QD
     Route: 065

REACTIONS (4)
  - Decreased appetite [Unknown]
  - Abdominal pain upper [Unknown]
  - Cardiac arrest [Fatal]
  - Dyspnoea [Unknown]
